FAERS Safety Report 9131178 (Version 1)
Quarter: 2013Q1

REPORT INFORMATION
  Report Type: Spontaneous
  Country: FR (occurrence: FR)
  Receive Date: 20130301
  Receipt Date: 20130301
  Transmission Date: 20140127
  Serious: Yes (Hospitalization)
  Sender: FDA-Public Use
  Company Number: FR-NOVOPROD-371821

PATIENT
  Age: 69 Year
  Sex: Female

DRUGS (11)
  1. NOVONORM [Suspect]
     Dosage: UNK
     Route: 048
     Dates: end: 201211
  2. FLUOXETINE [Suspect]
     Route: 048
  3. KARDEGIC [Concomitant]
     Route: 048
  4. LIPANTHYL [Concomitant]
     Route: 048
  5. MONOTILDIEM [Concomitant]
     Route: 048
  6. PULMICORT [Concomitant]
  7. THERALENE [Concomitant]
  8. LERCANIDIPINE [Concomitant]
     Route: 048
  9. LANTUS [Concomitant]
  10. EUPRESSYL                          /00631801/ [Concomitant]
     Route: 048
  11. INEXIUM /01479302/ [Concomitant]
     Dosage: UNK

REACTIONS (2)
  - Interstitial lung disease [Recovering/Resolving]
  - Respiratory distress [Recovered/Resolved]
